FAERS Safety Report 4723241-2 (Version None)
Quarter: 2005Q3

REPORT INFORMATION
  Report Type: 
  Country: None (occurrence: None)
  Receive Date: 20050719
  Receipt Date: 20040824
  Transmission Date: 20060218
  Serious: Yes (Other)
  Sender: FDA-Public Use
  Company Number: 203609

PATIENT
  Age: 40 Year
  Sex: Female
  Weight: 90.7194 kg

DRUGS (8)
  1. AVONEX [Suspect]
     Indication: MULTIPLE SCLEROSIS
     Dosage: 30 UG QW, IM
     Route: 030
     Dates: start: 20040301
  2. TEGRETOL [Concomitant]
  3. TOPAMAX [Concomitant]
  4. COZAAR [Concomitant]
  5. ASPIRIN [Concomitant]
  6. FIORINAL [Concomitant]
  7. CALCIUM GLUCONATE [Concomitant]
  8. VITAMIN D [Concomitant]

REACTIONS (2)
  - GRAND MAL CONVULSION [None]
  - INFLUENZA LIKE ILLNESS [None]
